FAERS Safety Report 8080376 (Version 3)
Quarter: 2012Q4

REPORT INFORMATION
  Report Type: 
  Country: JP (occurrence: JP)
  Receive Date: 20110808
  Receipt Date: 20121123
  Transmission Date: 20130627
  Serious: Yes (Other)
  Sender: FDA-Public Use
  Company Number: PHHY2011JP69511

PATIENT
  Sex: Female

DRUGS (34)
  1. CLOZARIL [Suspect]
     Indication: SCHIZOPHRENIA
     Dosage: 12.5 mg
     Route: 048
     Dates: start: 20101116
  2. CLOZARIL [Suspect]
     Dosage: 25 mg
     Route: 048
     Dates: start: 20101117
  3. CLOZARIL [Suspect]
     Dosage: 50 mg
     Route: 048
     Dates: start: 20101118
  4. CLOZARIL [Suspect]
     Dosage: 75 mg
     Route: 048
     Dates: start: 20101123
  5. CLOZARIL [Suspect]
     Dosage: 100 mg
     Route: 048
     Dates: start: 20101124
  6. CLOZARIL [Suspect]
     Dosage: 125 mg
     Route: 048
     Dates: start: 20101125
  7. CLOZARIL [Suspect]
     Dosage: 150 mg
     Route: 048
     Dates: start: 20101130
  8. CLOZARIL [Suspect]
     Dosage: 175 mg
     Route: 048
     Dates: start: 20101203
  9. CLOZARIL [Suspect]
     Dosage: 200 mg
     Route: 048
     Dates: start: 20101206
  10. CLOZARIL [Suspect]
     Dosage: 300 mg
     Route: 048
     Dates: start: 20101210
  11. CLOZARIL [Suspect]
     Dosage: 400 mg
     Route: 048
     Dates: start: 20101214
  12. CLOZARIL [Suspect]
     Dosage: 350 mg
     Route: 048
     Dates: start: 20101221
  13. CLOZARIL [Suspect]
     Dosage: 450 mg
     Route: 048
     Dates: start: 20110104
  14. CLOZARIL [Suspect]
     Dosage: 500 mg
     Route: 048
     Dates: start: 20110111
  15. CLOZARIL [Suspect]
     Dosage: 600 mg
     Route: 048
     Dates: start: 20110118
  16. CLOZARIL [Suspect]
     Dosage: 500 mg
     Route: 048
     Dates: start: 20110210
  17. THIORIDAZINE HYDROCHLORIDE [Concomitant]
     Route: 048
  18. HIRNAMIN [Concomitant]
  19. RISPERDAL [Concomitant]
     Route: 048
  20. LULLAN [Concomitant]
     Dosage: 48 mg
     Route: 048
     Dates: start: 20101116
  21. LULLAN [Concomitant]
     Dosage: 24 mg
     Route: 048
  22. LULLAN [Concomitant]
     Dosage: 16 mg
     Route: 048
     Dates: end: 20101202
  23. ZYPREXA [Concomitant]
     Dosage: 10 mg
     Route: 048
     Dates: start: 20101116, end: 20101213
  24. ABILIFY [Concomitant]
     Route: 048
  25. LONASEN [Concomitant]
     Dosage: 24 mg
     Route: 048
     Dates: start: 20101116
  26. LONASEN [Concomitant]
     Dosage: 12 mg, UNK
     Route: 048
     Dates: end: 20101209
  27. AKINETON [Concomitant]
     Dosage: 6 mg
     Route: 048
     Dates: start: 20101116
  28. AKINETON [Concomitant]
     Dosage: 4 mg
     Route: 048
  29. AKINETON [Concomitant]
     Dosage: 3 mg
     Route: 048
  30. AKINETON [Concomitant]
     Dosage: 2 mg
     Route: 048
  31. AKINETON [Concomitant]
     Dosage: 1 mg
     Dates: end: 20101231
  32. ALLEGRA [Concomitant]
     Indication: DERMATITIS
     Dosage: 120 mg, UNK
     Route: 048
     Dates: start: 20101214, end: 20101227
  33. FERROMIA [Concomitant]
     Indication: IRON DEFICIENCY ANAEMIA
     Dosage: 100 mg, UNK
     Route: 048
     Dates: start: 20010222, end: 20110524
  34. CORTRIL [Concomitant]
     Indication: DERMATITIS
     Dates: start: 20110321, end: 20110322

REACTIONS (9)
  - Diarrhoea [Recovered/Resolved]
  - Constipation [Recovered/Resolved]
  - Vomiting [Unknown]
  - Clonic convulsion [Recovered/Resolved]
  - Loss of consciousness [Unknown]
  - Convulsion [Recovered/Resolved]
  - Salivary hypersecretion [Not Recovered/Not Resolved]
  - Dermatitis [Unknown]
  - Upper respiratory tract inflammation [Unknown]
